FAERS Safety Report 24812842 (Version 1)
Quarter: 2025Q1

REPORT INFORMATION
  Report Type: Other
  Country: CA (occurrence: CA)
  Receive Date: 20250107
  Receipt Date: 20250107
  Transmission Date: 20250409
  Serious: Yes (Other)
  Sender: APOTEX
  Company Number: CA-APOTEX-2024AP020430

PATIENT
  Age: 62 Year
  Sex: Female

DRUGS (1)
  1. LETROZOLE [Suspect]
     Active Substance: LETROZOLE
     Indication: Product used for unknown indication
     Dosage: 2.5 MILLIGRAM, QD
     Route: 048

REACTIONS (8)
  - Breast cancer [Unknown]
  - Breast mass [Unknown]
  - Thyroiditis [Unknown]
  - Breast necrosis [Unknown]
  - Granuloma [Unknown]
  - Lymphadenopathy [Unknown]
  - Osteoporosis [Unknown]
  - Drug effect less than expected [Unknown]
